FAERS Safety Report 6741347-3 (Version None)
Quarter: 2010Q2

REPORT INFORMATION
  Report Type: 
  Country: None (occurrence: None)
  Receive Date: 20100526
  Receipt Date: 20100519
  Transmission Date: 20101027
  Serious: Yes (Other)
  Sender: FDA-Public Use
  Company Number: GB-PFIZER INC-2010057676

PATIENT
  Age: 50 Year
  Sex: Female
  Weight: 101 kg

DRUGS (6)
  1. CHAMPIX [Suspect]
     Indication: SMOKING CESSATION THERAPY
     Dosage: 1 MG, 2X/DAY
     Route: 048
     Dates: start: 20100401, end: 20100422
  2. DIHYDROCODEINE [Concomitant]
     Indication: PAIN
     Dosage: 30 MG, 2X/DAY
     Route: 048
     Dates: start: 20020101
  3. METFORMIN [Concomitant]
     Indication: DIABETES MELLITUS
     Dosage: 2 G, 1X/DAY
     Route: 048
     Dates: start: 19960101
  4. SIMVASTATIN [Concomitant]
     Indication: DIABETES MELLITUS
     Dosage: 40 MG
     Route: 048
     Dates: start: 20020101
  5. TRAMADOL [Concomitant]
     Indication: PAIN
     Dosage: 50 MG
     Route: 048
     Dates: start: 20040101
  6. INSULIN [Concomitant]
     Indication: TYPE 2 DIABETES MELLITUS
     Dosage: UNK

REACTIONS (1)
  - BLOOD GLUCOSE INCREASED [None]
